FAERS Safety Report 11061569 (Version 3)
Quarter: 2015Q4

REPORT INFORMATION
  Report Type: Spontaneous
  Country: US (occurrence: US)
  Receive Date: 20150424
  Receipt Date: 20151005
  Transmission Date: 20160304
  Serious: No
  Sender: FDA-Public Use
  Company Number: US-PFIZER INC-2015137476

PATIENT
  Age: 81 Year
  Sex: Female

DRUGS (1)
  1. SUTENT [Suspect]
     Active Substance: SUNITINIB MALATE
     Indication: RENAL CANCER
     Dosage: 37.5 MG, CYCLIC (DAILY FOR 28 DAYS ON AND 14DAYS OFF)
     Dates: start: 20150115

REACTIONS (3)
  - Skin hypertrophy [Recovering/Resolving]
  - Rash [Recovering/Resolving]
  - Decreased appetite [Unknown]
